FAERS Safety Report 5444949-X (Version None)
Quarter: 2007Q3

REPORT INFORMATION
  Report Type: 
  Country: None (occurrence: None)
  Receive Date: 20070906
  Receipt Date: 20070830
  Transmission Date: 20080115
  Serious: Yes (Death)
  Sender: FDA-Public Use
  Company Number: KR-ROCHE-514385

PATIENT

DRUGS (2)
  1. CAPECITABINE [Suspect]
     Dosage: TAKEN ON DAYS 1-14 OF THE 21 DAY CYCLE
     Route: 048
  2. GEMCITABINE HCL [Suspect]
     Dosage: INFUSION OVER 30 MIN GIVEN ON DAY 1 AND DAY 8 OF THE 21 DAY CYCLE
     Route: 042

REACTIONS (1)
  - NEUTROPENIC SEPSIS [None]
